FAERS Safety Report 9740202 (Version 3)
Quarter: 2014Q1

REPORT INFORMATION
  Report Type: Spontaneous
  Country: US (occurrence: US)
  Receive Date: 20131209
  Receipt Date: 20140328
  Transmission Date: 20141002
  Serious: No
  Sender: FDA-Public Use
  Company Number: US-PFIZER INC-2013347904

PATIENT
  Age: 69 Year
  Sex: Male

DRUGS (4)
  1. SUTENT [Suspect]
     Indication: RENAL CANCER
     Dosage: 50 MG, 1X/DAY (STRENGTH OF DOSAGE FORM: 12.5 MG)
     Route: 048
     Dates: start: 20131108
  2. ALLOPURINOL [Concomitant]
     Dosage: UNK
  3. NAPROSYN [Concomitant]
     Dosage: UNK
  4. XGEVA [Concomitant]
     Dosage: UNK

REACTIONS (5)
  - Dyspnoea [Unknown]
  - Diarrhoea [Unknown]
  - Stomatitis [Unknown]
  - Fatigue [Unknown]
  - Dry mouth [Unknown]
